FAERS Safety Report 8004608-6 (Version None)
Quarter: 2011Q4

REPORT INFORMATION
  Report Type: 
  Country: None (occurrence: None)
  Receive Date: 20111220
  Receipt Date: 20111210
  Transmission Date: 20120403
  Serious: Yes (Hospitalization)
  Sender: FDA-Public Use
  Company Number: 1118068

PATIENT
  Age: 67 Year
  Sex: Female

DRUGS (8)
  1. FLUOROURACIL [Concomitant]
  2. DIPHENHYDRAMINE HCL [Concomitant]
  3. KYTRIL [Concomitant]
  4. DEXAMETHASONE [Concomitant]
  5. CETUXIMAB [Concomitant]
  6. PANITUMUMAB [Concomitant]
  7. LEUCOVORIN CALCIUM [Suspect]
     Indication: COLON CANCER METASTATIC
     Dosage: INTRAVENOUS DRIP
     Route: 041
  8. OXALIPLATIN [Concomitant]

REACTIONS (4)
  - TOXICITY TO VARIOUS AGENTS [None]
  - PALMAR-PLANTAR ERYTHRODYSAESTHESIA SYNDROME [None]
  - ANAPHYLACTIC SHOCK [None]
  - DIARRHOEA [None]
